FAERS Safety Report 25009223 (Version 1)
Quarter: 2025Q1

REPORT INFORMATION
  Report Type: Spontaneous
  Country: US (occurrence: None)
  Receive Date: 20250224
  Receipt Date: 20250224
  Transmission Date: 20250408
  Serious: Yes (Death)
  Sender: FDA-CTU
  Company Number: None

PATIENT
  Age: 66 Year
  Sex: Male

DRUGS (3)
  1. CLOPIDOGREL [Suspect]
     Active Substance: CLOPIDOGREL BISULFATE
  2. APIXABAN [Suspect]
     Active Substance: APIXABAN
  3. HEPARIN [Concomitant]
     Active Substance: HEPARIN SODIUM

REACTIONS (9)
  - Atrial fibrillation [None]
  - SARS-CoV-2 test positive [None]
  - Peripheral ischaemia [None]
  - Haemoglobin decreased [None]
  - Melaena [None]
  - Peripheral artery thrombosis [None]
  - Pulmonary embolism [None]
  - Small intestinal haemorrhage [None]
  - Cardio-respiratory arrest [None]

NARRATIVE: CASE EVENT DATE: 20240111
